FAERS Safety Report 14007805 (Version 2)
Quarter: 2017Q4

REPORT INFORMATION
  Report Type: Report from Study
  Country: US (occurrence: US)
  Receive Date: 20170925
  Receipt Date: 20171003
  Transmission Date: 20180321
  Serious: Yes (Hospitalization, Other)
  Sender: FDA-Public Use
  Company Number: US-PFIZER INC-2017116140

PATIENT
  Age: 90 Year
  Sex: Female

DRUGS (4)
  1. IBRANCE [Suspect]
     Active Substance: PALBOCICLIB
     Indication: BREAST CANCER METASTATIC
     Dosage: 125 MG, 1X/DAY
     Route: 048
     Dates: start: 20170308, end: 20170615
  2. IBRANCE [Suspect]
     Active Substance: PALBOCICLIB
     Dosage: 125 MG, 1X/DAY
     Route: 048
     Dates: end: 20170828
  3. IBRANCE [Suspect]
     Active Substance: PALBOCICLIB
     Dosage: 125 MG, DAILY
     Route: 048
     Dates: start: 2017
  4. LETROZOLE. [Suspect]
     Active Substance: LETROZOLE
     Dosage: UNK

REACTIONS (30)
  - Fall [Unknown]
  - Chapped lips [Unknown]
  - Amnesia [Unknown]
  - Localised infection [Unknown]
  - Movement disorder [Unknown]
  - Head injury [Unknown]
  - Fatigue [Unknown]
  - Red blood cell count decreased [Recovering/Resolving]
  - Myalgia [Unknown]
  - Lip discolouration [Unknown]
  - Diarrhoea [Unknown]
  - Deafness [Unknown]
  - Constipation [Unknown]
  - Fall [Unknown]
  - Balance disorder [Unknown]
  - Somnolence [Unknown]
  - Urinary tract infection [Unknown]
  - Alopecia [Unknown]
  - Contusion [Unknown]
  - Cystitis [Unknown]
  - Pollakiuria [Unknown]
  - Urinary incontinence [Unknown]
  - Decreased appetite [Unknown]
  - Osteonecrosis of jaw [Unknown]
  - Renal impairment [Unknown]
  - Drug dose omission [Unknown]
  - White blood cell count decreased [Recovering/Resolving]
  - Head injury [Unknown]
  - Bone loss [Unknown]
  - Skin papilloma [Unknown]

NARRATIVE: CASE EVENT DATE: 2017
